FAERS Safety Report 9171247 (Version 1)
Quarter: 2013Q1

REPORT INFORMATION
  Report Type: Other
  Country: CA (occurrence: CA)
  Receive Date: 20130319
  Receipt Date: 20130319
  Transmission Date: 20140127
  Serious: Yes (Hospitalization, Other)
  Sender: FDA-Public Use
  Company Number: CA-NAPPMUNDI-CAN-2013-0003895

PATIENT
  Sex: Female
  Weight: 39.5 kg

DRUGS (3)
  1. OXYNEO 80 MG [Suspect]
     Indication: FIBROMYALGIA
     Dosage: 80 MG, TID
     Route: 065
     Dates: start: 201203
  2. OXYNEO 80 MG [Suspect]
     Indication: BACK PAIN
  3. ENSURE                             /06184901/ [Concomitant]
     Indication: DECREASED APPETITE
     Dosage: UNK
     Route: 065
     Dates: start: 2011

REACTIONS (3)
  - Renal failure [Not Recovered/Not Resolved]
  - Abnormal behaviour [Unknown]
  - Accidental overdose [Unknown]
